FAERS Safety Report 4819856-3 (Version None)
Quarter: 2005Q4

REPORT INFORMATION
  Report Type: 
  Country: None (occurrence: None)
  Receive Date: 20051102
  Receipt Date: 20051018
  Transmission Date: 20060501
  Serious: Yes (Congenital Anomaly)
  Sender: FDA-Public Use
  Company Number: 8012969

PATIENT

DRUGS (3)
  1. KEPPRA [Suspect]
     Indication: EPILEPSY
     Dosage: 2 G 2/D TRP
  2. LAMOTRIGINE [Suspect]
     Indication: EPILEPSY
     Dosage: 400 MG 2/D TRP
  3. GABAPENTIN [Suspect]
     Indication: EPILEPSY
     Dosage: 1200 MG 2/D TRP

REACTIONS (2)
  - DRUG EXPOSURE DURING PREGNANCY [None]
  - TALIPES [None]
